FAERS Safety Report 23391821 (Version 1)
Quarter: 2024Q1

REPORT INFORMATION
  Report Type: Spontaneous
  Country: US (occurrence: US)
  Receive Date: 20240111
  Receipt Date: 20240111
  Transmission Date: 20240409
  Serious: Yes (Death, Hospitalization, Other)
  Sender: FDA-Public Use
  Company Number: US-ADVANZ PHARMA-202312012168

PATIENT

DRUGS (4)
  1. CLONIDINE [Suspect]
     Active Substance: CLONIDINE
     Dosage: UNK (INGESTION)
     Route: 048
  2. QUETIAPINE [Suspect]
     Active Substance: QUETIAPINE
     Dosage: UNK (INGESTION)
     Route: 048
  3. FENTANYL [Suspect]
     Active Substance: FENTANYL\FENTANYL CITRATE
     Dosage: UNK (INGESTION) (PRESCRIPTION)
     Route: 048
  4. COCAINE [Suspect]
     Active Substance: COCAINE
     Dosage: UNK (INGESTION)
     Route: 048

REACTIONS (3)
  - Completed suicide [Fatal]
  - Cardio-respiratory arrest [Fatal]
  - Exposure during pregnancy [Unknown]
